FAERS Safety Report 19958710 (Version 1)
Quarter: 2021Q4

REPORT INFORMATION
  Report Type: Spontaneous
  Country: US (occurrence: US)
  Receive Date: 20211012
  Receipt Date: 20211012
  Transmission Date: 20220303
  Serious: Yes (Hospitalization)
  Sender: FDA-Public Use
  Company Number: None

PATIENT
  Age: 58 Year
  Sex: Male
  Weight: 60.78 kg

DRUGS (1)
  1. BACLOFEN [Suspect]
     Active Substance: BACLOFEN
     Indication: Pain
     Route: 048
     Dates: start: 20210308, end: 20210314

REACTIONS (4)
  - Pain in extremity [None]
  - Pain [None]
  - Paraesthesia [None]
  - Dyskinesia [None]

NARRATIVE: CASE EVENT DATE: 20210319
